FAERS Safety Report 6644068-0 (Version None)
Quarter: 2010Q1

REPORT INFORMATION
  Report Type: 
  Country: None (occurrence: None)
  Receive Date: 20100322
  Receipt Date: 20100308
  Transmission Date: 20100710
  Serious: Yes (Life-Threatening, Other)
  Sender: FDA-Public Use
  Company Number: PHEH2009US06207

PATIENT

DRUGS (1)
  1. RECLAST [Suspect]
     Dosage: UNK
     Dates: start: 20090408

REACTIONS (4)
  - BLOOD URINE PRESENT [None]
  - BONE DENSITY DECREASED [None]
  - PROGESTERONE DECREASED [None]
  - RENAL FAILURE [None]
